FAERS Safety Report 5690819-1 (Version None)
Quarter: 2008Q2

REPORT INFORMATION
  Report Type: 
  Country: None (occurrence: None)
  Receive Date: 20080401
  Receipt Date: 20080327
  Transmission Date: 20081010
  Serious: Yes (Hospitalization)
  Sender: FDA-Public Use
  Company Number: B0511158A

PATIENT
  Age: 82 Year
  Sex: Male
  Weight: 43 kg

DRUGS (9)
  1. ZOVIRAX [Suspect]
     Indication: HERPES ZOSTER
     Dosage: 200MG THREE TIMES PER DAY
     Route: 048
     Dates: start: 20080228, end: 20080305
  2. METILDIGOXIN [Concomitant]
     Indication: ATRIAL FIBRILLATION
     Dosage: .1MG PER DAY
     Route: 048
     Dates: end: 20080305
  3. CYANOCOBALAMIN [Concomitant]
     Dosage: 1500MG PER DAY
     Route: 048
     Dates: start: 20080228
  4. ARASENA-A [Concomitant]
     Route: 061
     Dates: start: 20080228
  5. ENALAPRIL MALEATE [Concomitant]
     Route: 048
  6. FERROMIA [Concomitant]
     Route: 048
  7. ENALAPRIL MALEATE [Concomitant]
     Dosage: 5MG PER DAY
     Route: 048
  8. UNKNOWN [Concomitant]
     Dosage: 100MG PER DAY
     Route: 048
  9. FUROSEMIDE [Concomitant]
     Dosage: 40MG PER DAY
     Route: 048

REACTIONS (7)
  - ABASIA [None]
  - ALTERED STATE OF CONSCIOUSNESS [None]
  - BRADYCARDIA [None]
  - DECREASED APPETITE [None]
  - DYSLALIA [None]
  - IMMOBILE [None]
  - MALAISE [None]
